FAERS Safety Report 13818179 (Version 1)
Quarter: 2017Q3

REPORT INFORMATION
  Report Type: Spontaneous
  Country: US (occurrence: US)
  Receive Date: 20170731
  Receipt Date: 20170731
  Transmission Date: 20171127
  Serious: No
  Sender: FDA-Public Use
  Company Number: US-ROCHE-653434

PATIENT
  Age: 70 Year
  Sex: Female

DRUGS (1)
  1. BONIVA [Suspect]
     Active Substance: IBANDRONATE SODIUM
     Indication: PRODUCT USED FOR UNKNOWN INDICATION
     Dosage: DOSE FORM: PREFILLED SYRINGE, STRENGTH: 3MG/ML, DOSE: 3MG/ML Q 3 MONTHS
     Route: 042

REACTIONS (2)
  - Injection site inflammation [Unknown]
  - Injection site pain [Unknown]
